FAERS Safety Report 17164625 (Version 3)
Quarter: 2020Q4

REPORT INFORMATION
  Report Type: Spontaneous
  Country: PL (occurrence: PL)
  Receive Date: 20191217
  Receipt Date: 20201030
  Transmission Date: 20210113
  Serious: Yes (Hospitalization, Other)
  Sender: FDA-Public Use
  Company Number: PL-PFIZER INC-2019531811

PATIENT
  Age: 22 Year
  Sex: Male

DRUGS (9)
  1. PERAZINE [Suspect]
     Active Substance: PERAZINE
     Indication: SCHIZOPHRENIA
     Dosage: 300 MG, DAILY FOR 3 WEEKS
  2. RISPERIDON [Suspect]
     Active Substance: RISPERIDONE
     Dosage: 1 MG, 3X/DAY
  3. OLANZAPINE. [Suspect]
     Active Substance: OLANZAPINE
     Indication: SCHIZOPHRENIA
     Dosage: 20 MG, DAILY FOR 10 WEEKS
  4. SERTRALINE HCL [Suspect]
     Active Substance: SERTRALINE HYDROCHLORIDE
     Indication: SCHIZOPHRENIA
     Dosage: 50 MG, DAILY FOR 5 WEEKS
  5. VALPROIC ACID. [Suspect]
     Active Substance: VALPROIC ACID
     Dosage: 600 MG, 2X/DAY
  6. RISPERIDON [Suspect]
     Active Substance: RISPERIDONE
     Dosage: 4 MG, DAILY (ON 15TH DAY OF THERAPY)
     Route: 048
  7. RISPERIDON [Suspect]
     Active Substance: RISPERIDONE
     Indication: SCHIZOPHRENIA
     Dosage: 6 MG, DAILY FOR 12 WEEKS
     Route: 048
  8. CLOZAPINE. [Concomitant]
     Active Substance: CLOZAPINE
     Dosage: UNK
  9. VALPROIC ACID. [Suspect]
     Active Substance: VALPROIC ACID
     Indication: SCHIZOPHRENIA
     Dosage: 1200 MG, DAILY FOR 3 WEEKS

REACTIONS (3)
  - Drug ineffective [Unknown]
  - Psychotic symptom [Unknown]
  - Condition aggravated [Unknown]
